FAERS Safety Report 7982592-9 (Version None)
Quarter: 2011Q4

REPORT INFORMATION
  Report Type: 
  Country: None (occurrence: None)
  Receive Date: 20111215
  Receipt Date: 20111208
  Transmission Date: 20120403
  Serious: Yes (Hospitalization)
  Sender: FDA-Public Use
  Company Number: US-GLAXOSMITHKLINE-A0957328A

PATIENT
  Sex: Male

DRUGS (2)
  1. LAMICTAL [Suspect]
     Indication: EPILEPSY
     Dosage: 800MG PER DAY
     Route: 048
     Dates: start: 20101201
  2. LAMICTAL [Suspect]
     Dosage: 100MG FOUR TIMES PER DAY
     Route: 048

REACTIONS (5)
  - OVERDOSE [None]
  - DIZZINESS [None]
  - FALL [None]
  - INSOMNIA [None]
  - ASTHENIA [None]
